FAERS Safety Report 5481748-7 (Version None)
Quarter: 2007Q4

REPORT INFORMATION
  Report Type: 
  Country: None (occurrence: None)
  Receive Date: 20071010
  Receipt Date: 20070928
  Transmission Date: 20080405
  Serious: Yes (Hospitalization, Congenital Anomaly)
  Sender: FDA-Public Use
  Company Number: BR-SHR-BR-2006-003629

PATIENT
  Age: 1 Day
  Sex: Male
  Weight: 1.7 kg

DRUGS (1)
  1. BETAFERON [Suspect]
     Indication: RELAPSING-REMITTING MULTIPLE SCLEROSIS
     Dosage: 500 A?G, EVERY 2D
     Route: 058
     Dates: start: 20040730, end: 20050902

REACTIONS (1)
  - DANDY-WALKER SYNDROME [None]
